FAERS Safety Report 9596435 (Version 1)
Quarter: 2013Q4

REPORT INFORMATION
  Report Type: Spontaneous
  Country: FR (occurrence: FR)
  Receive Date: 20131004
  Receipt Date: 20131004
  Transmission Date: 20140711
  Serious: Yes (Hospitalization)
  Sender: FDA-Public Use
  Company Number: FR-PFIZER INC-2013283646

PATIENT
  Age: 70 Year
  Sex: Female

DRUGS (11)
  1. TENORMIN [Suspect]
     Indication: HYPERTENSION
     Dosage: 100 MG, DAILY
     Route: 048
     Dates: end: 20120713
  2. COTAREG [Concomitant]
     Dosage: 160 MG VALSARTAN /25 MG HYDROCHLOROTHIAZIDE, UNK
     Route: 065
  3. LEVOTHYROX [Concomitant]
     Dosage: 175 UG, UNK
     Route: 065
  4. KARDEGIC [Concomitant]
     Dosage: 75 MG, UNK
     Route: 065
  5. AMLOR [Concomitant]
     Dosage: 10 MG, UNK
     Route: 065
  6. GLUCOPHAGE [Concomitant]
     Dosage: 850 MG, 3X/DAY
     Route: 065
  7. LAMALINE [Concomitant]
     Dosage: UNK
     Route: 065
  8. OMEPRAZOLE [Concomitant]
     Dosage: 20 MG, UNK
     Route: 065
  9. VOLTARENE [Concomitant]
     Dosage: 100 MG, UNK
     Route: 065
  10. TRANSULOSE [Concomitant]
     Dosage: UNK
     Route: 065
  11. CALCIDOSE [Concomitant]
     Dosage: UNK
     Route: 065

REACTIONS (4)
  - Asthma [Recovered/Resolved]
  - Headache [Unknown]
  - Vomiting [Unknown]
  - Pyrexia [Unknown]
